FAERS Safety Report 18918784 (Version 1)
Quarter: 2021Q1

REPORT INFORMATION
  Report Type: Spontaneous
  Country: US (occurrence: US)
  Receive Date: 20210220
  Receipt Date: 20210220
  Transmission Date: 20210420
  Serious: Yes (Hospitalization, Other)
  Sender: FDA-Public Use
  Company Number: US-MICRO LABS LIMITED-ML2021-00478

PATIENT
  Age: 20 Year
  Sex: Female

DRUGS (1)
  1. VERAPAMIL HYDROCHLORIDE. [Suspect]
     Active Substance: VERAPAMIL HYDROCHLORIDE
     Dosage: APPROXIMATELY FORTY 240 MG TABLETS
     Route: 048

REACTIONS (14)
  - Tricuspid valve disease [Unknown]
  - Intentional overdose [Unknown]
  - Acute kidney injury [Unknown]
  - Depressed level of consciousness [Unknown]
  - Hypotension [Recovering/Resolving]
  - Toxicity to various agents [Unknown]
  - Renal tubular necrosis [Unknown]
  - Sinus bradycardia [Unknown]
  - Atrioventricular block first degree [Recovering/Resolving]
  - Cardiogenic shock [Recovering/Resolving]
  - Mental impairment [Recovering/Resolving]
  - Acidosis [Recovering/Resolving]
  - Pneumonia aspiration [Unknown]
  - Vomiting [Unknown]
